FAERS Safety Report 14071038 (Version 1)
Quarter: 2017Q4

REPORT INFORMATION
  Report Type: Spontaneous
  Country: US (occurrence: US)
  Receive Date: 20171010
  Receipt Date: 20171010
  Transmission Date: 20180321
  Serious: Yes (Death)
  Sender: FDA-Public Use
  Company Number: US-JNJFOC-20170922051

PATIENT
  Sex: Male

DRUGS (10)
  1. IMBRUVICA [Suspect]
     Active Substance: IBRUTINIB
     Indication: LEUKAEMIA
     Route: 065
     Dates: start: 20170526
  2. IMODIUM [Concomitant]
     Active Substance: LOPERAMIDE HYDROCHLORIDE
  3. CHOP [Suspect]
     Active Substance: CYCLOPHOSPHAMIDE\DOXORUBICIN\PREDNISONE\VINCRISTINE
     Indication: LEUKAEMIA
     Route: 065
     Dates: start: 20170526
  4. OXYCODONE [Concomitant]
     Active Substance: OXYCODONE
  5. COMPAZINE [Concomitant]
     Active Substance: PROCHLORPERAZINE MALEATE
  6. MAALOX ANTACID [Concomitant]
     Active Substance: ALUMINUM HYDROXIDE\DIMETHICONE\MAGNESIUM HYDROXIDE
  7. ALLOPURINOL. [Concomitant]
     Active Substance: ALLOPURINOL
  8. TYLENOL [Concomitant]
     Active Substance: ACETAMINOPHEN
  9. ACYCLOVIR. [Concomitant]
     Active Substance: ACYCLOVIR
  10. CIPROFLOXACIN. [Concomitant]
     Active Substance: CIPROFLOXACIN

REACTIONS (2)
  - Blood immunoglobulin M increased [Unknown]
  - Pneumonia [Fatal]
